FAERS Safety Report 7660749-4 (Version None)
Quarter: 2011Q3

REPORT INFORMATION
  Report Type: 
  Country: None (occurrence: None)
  Receive Date: 20110805
  Receipt Date: 20101103
  Transmission Date: 20111222
  Serious: No
  Sender: FDA-Public Use
  Company Number: US-ABBOTT-10P-163-0683400-00

PATIENT
  Sex: Male
  Weight: 95.34 kg

DRUGS (6)
  1. ATACAND/HCTZ [Concomitant]
     Indication: HYPERTENSION
  2. METOPROLOL TARTRATE [Concomitant]
     Indication: HYPERTENSION
  3. GEMFIBROZIL [Concomitant]
     Indication: BLOOD CHOLESTEROL INCREASED
  4. AMLODIPINE BESYLATE [Concomitant]
     Indication: HYPERTENSION
  5. NIASPAN [Suspect]
     Indication: HIGH DENSITY LIPOPROTEIN DECREASED
     Dates: start: 20101030
  6. BENAZEPRIL HYDROCHLORIDE [Concomitant]
     Indication: PRODUCT USED FOR UNKNOWN INDICATION

REACTIONS (1)
  - MYALGIA [None]
